FAERS Safety Report 9865868 (Version 2)
Quarter: 2014Q1

REPORT INFORMATION
  Report Type: Spontaneous
  Country: US (occurrence: US)
  Receive Date: 20140203
  Receipt Date: 20140203
  Transmission Date: 20141002
  Serious: No
  Sender: FDA-Public Use
  Company Number: US-ALLERGAN-1311844US

PATIENT
  Sex: Male

DRUGS (1)
  1. RESTASIS [Suspect]
     Indication: SJOGREN^S SYNDROME
     Dosage: 2 GTT, BID
     Route: 047
     Dates: start: 201307

REACTIONS (5)
  - Off label use [Unknown]
  - Eye irritation [Recovered/Resolved]
  - Eye irritation [Recovered/Resolved]
  - Dry eye [Recovered/Resolved]
  - Scleral hyperaemia [Recovered/Resolved]
